FAERS Safety Report 6917168-5 (Version None)
Quarter: 2010Q3

REPORT INFORMATION
  Report Type: 
  Country: None (occurrence: None)
  Receive Date: 20100804
  Receipt Date: 20100707
  Transmission Date: 20110219
  Serious: Yes (Hospitalization)
  Sender: FDA-Public Use
  Company Number: 2010SP037912

PATIENT
  Age: 51 Year
  Sex: Female

DRUGS (5)
  1. CLARITIN [Suspect]
     Indication: PRODUCT USED FOR UNKNOWN INDICATION
     Dosage: 1 DF; QD; PO
     Route: 048
     Dates: start: 20100316, end: 20100316
  2. FLURAZEPAM HCL [Suspect]
     Indication: PRODUCT USED FOR UNKNOWN INDICATION
     Dosage: 2 DF; QD; PO
     Route: 048
     Dates: start: 20100316, end: 20100316
  3. VENTOLIN [Suspect]
     Indication: PRODUCT USED FOR UNKNOWN INDICATION
     Dosage: ; RESP
     Route: 055
     Dates: start: 20100316, end: 20100316
  4. FLUCTINE [Concomitant]
  5. LORAZEPAM [Concomitant]

REACTIONS (2)
  - DRUG ABUSE [None]
  - SUICIDE ATTEMPT [None]
